FAERS Safety Report 16305468 (Version 1)
Quarter: 2019Q2

REPORT INFORMATION
  Report Type: Spontaneous
  Country: US (occurrence: US)
  Receive Date: 20190512
  Receipt Date: 20190512
  Transmission Date: 20190711
  Serious: Yes (Life-Threatening)
  Sender: FDA-Public Use
  Company Number: None

PATIENT
  Age: 84 Year
  Sex: Female
  Weight: 60.75 kg

DRUGS (1)
  1. PAROXETINE. [Suspect]
     Active Substance: PAROXETINE
     Indication: INSOMNIA
     Dosage: ?          QUANTITY:1 TABLET(S);?
     Route: 048
     Dates: start: 20180506, end: 20190509

REACTIONS (7)
  - Gait inability [None]
  - Asthenia [None]
  - Seizure [None]
  - Headache [None]
  - Decreased appetite [None]
  - Tremor [None]
  - Poverty of speech [None]

NARRATIVE: CASE EVENT DATE: 20181126
